FAERS Safety Report 8596618-5 (Version None)
Quarter: 2012Q3

REPORT INFORMATION
  Report Type: 
  Country: None (occurrence: None)
  Receive Date: 20120815
  Receipt Date: 20120807
  Transmission Date: 20120928
  Serious: Yes (Hospitalization)
  Sender: FDA-Public Use
  Company Number: JP-BRISTOL-MYERS SQUIBB COMPANY-14825657

PATIENT
  Age: 55 Year
  Sex: Female

DRUGS (7)
  1. FAMOTIDINE [Concomitant]
     Dosage: FORMULATION=GRAN
     Route: 048
  2. AMIKACIN SULFATE [Concomitant]
     Route: 042
     Dates: start: 20090729, end: 20090814
  3. SPRYCEL [Suspect]
     Indication: CHRONIC MYELOID LEUKAEMIA
     Dosage: 50 MG TILL 29JUL09 100 MG FROM 30 JUL-14AUG09
     Route: 048
     Dates: start: 20090723, end: 20090814
  4. SUCRALFATE [Concomitant]
     Dosage: SUCRALFATE HYDRATE,FORMULATION=GRAN
     Route: 048
  5. MIDODRINE HYDROCHLORIDE [Concomitant]
     Route: 048
  6. NICERGOLINE [Concomitant]
     Dosage: FORMULATION=GRAN
     Route: 048
  7. VALPROATE SODIUM [Concomitant]
     Dosage: FORMULATION=FGRAN
     Route: 048

REACTIONS (6)
  - PLEURAL EFFUSION [None]
  - RASH [None]
  - CIRCULATORY COLLAPSE [None]
  - PULMONARY OEDEMA [None]
  - BRONCHITIS [None]
  - GENERALISED OEDEMA [None]
